FAERS Safety Report 16968212 (Version 3)
Quarter: 2019Q4

REPORT INFORMATION
  Report Type: Spontaneous
  Country: CH (occurrence: CH)
  Receive Date: 20191028
  Receipt Date: 20191125
  Transmission Date: 20200122
  Serious: No
  Sender: FDA-Public Use
  Company Number: CH-BEH-2019108652

PATIENT
  Age: 30 Year
  Sex: Female
  Weight: 47.1 kg

DRUGS (1)
  1. PRIVIGEN [Suspect]
     Active Substance: HUMAN IMMUNOGLOBULIN G
     Dosage: 50 GRAM
     Route: 042
     Dates: start: 20191024, end: 20191024

REACTIONS (6)
  - Injection site erythema [Recovered/Resolved]
  - Injection site warmth [Recovered/Resolved]
  - Injection site swelling [Recovered/Resolved]
  - Infusion site extravasation [Unknown]
  - Device leakage [Unknown]
  - No adverse event [Unknown]

NARRATIVE: CASE EVENT DATE: 20191024
